FAERS Safety Report 16456481 (Version 1)
Quarter: 2019Q3

REPORT INFORMATION
  Report Type: Spontaneous
  Country: US (occurrence: US)
  Receive Date: 20190619
  Receipt Date: 20190619
  Transmission Date: 20191004
  Serious: Yes (Hospitalization)
  Sender: FDA-Public Use
  Company Number: None

PATIENT
  Age: 62 Year
  Sex: Male
  Weight: 79.2 kg

DRUGS (3)
  1. ANDEXXA [Suspect]
     Active Substance: ANDEXANET ALFA
     Indication: PROCOAGULANT THERAPY
     Dosage: ?          OTHER FREQUENCY:BOLUS/2HR INFUSION;?
     Route: 042
  2. ACETAMINOPHEN (OFIRMEV) [Concomitant]
     Dates: start: 20190602, end: 20190603
  3. NIVOLUMAB [Concomitant]
     Active Substance: NIVOLUMAB
     Dates: start: 20160701

REACTIONS (2)
  - Chest pain [None]
  - Electrocardiogram ST segment elevation [None]

NARRATIVE: CASE EVENT DATE: 20190603
